APPROVED DRUG PRODUCT: MINOXIDIL
Active Ingredient: MINOXIDIL
Strength: 2.5MG
Dosage Form/Route: TABLET;ORAL
Application: A072709 | Product #002 | TE Code: AB
Applicant: SUN PHARMACEUTICAL INDUSTRIES INC
Approved: Dec 14, 1995 | RLD: No | RS: No | Type: RX